FAERS Safety Report 8543954-4 (Version None)
Quarter: 2012Q3

REPORT INFORMATION
  Report Type: 
  Country: None (occurrence: None)
  Receive Date: 20120717
  Receipt Date: 20120521
  Transmission Date: 20120928
  Serious: Yes (Congenital Anomaly)
  Sender: FDA-Public Use
  Company Number: 640/120510

PATIENT
  Age: 39 Year
  Sex: Female

DRUGS (1)
  1. TODAY VAGINAL CONTRACEPTIVE SPONGE, 1 GM NONOXYNOL-9 [Suspect]
     Indication: CONTRACEPTION
     Dosage: 1 GM, VAGINAL
     Route: 067

REACTIONS (2)
  - PREGNANCY WITH CONTRACEPTIVE DEVICE [None]
  - ABORTION SPONTANEOUS [None]
